FAERS Safety Report 23231243 (Version 2)
Quarter: 2023Q4

REPORT INFORMATION
  Report Type: Spontaneous
  Country: US (occurrence: US)
  Receive Date: 20231127
  Receipt Date: 20231129
  Transmission Date: 20240110
  Serious: Yes (Hospitalization, Other)
  Sender: FDA-Public Use
  Company Number: US-SA-SAC20231123001094

PATIENT
  Age: 69 Year
  Sex: Male
  Weight: 123 kg

DRUGS (1)
  1. DUPIXENT [Suspect]
     Active Substance: DUPILUMAB
     Indication: Asthma
     Dosage: 300 MG, QOW
     Route: 058
     Dates: start: 20231110

REACTIONS (14)
  - Pneumonia [Recovering/Resolving]
  - Nasal congestion [Recovering/Resolving]
  - Condition aggravated [Recovering/Resolving]
  - Cough [Recovering/Resolving]
  - Migraine [Recovering/Resolving]
  - Condition aggravated [Recovering/Resolving]
  - Dizziness [Unknown]
  - Confusional state [Unknown]
  - Head discomfort [Unknown]
  - Gait inability [Unknown]
  - Peripheral coldness [Unknown]
  - White blood cell count increased [Unknown]
  - Malaise [Unknown]
  - Sinus headache [Recovering/Resolving]

NARRATIVE: CASE EVENT DATE: 20231101
